FAERS Safety Report 4768203-4 (Version None)
Quarter: 2005Q3

REPORT INFORMATION
  Report Type: 
  Country: None (occurrence: None)
  Receive Date: 20050914
  Receipt Date: 20050706
  Transmission Date: 20060218
  Serious: Yes (Death, Other)
  Sender: FDA-Public Use
  Company Number: HK-ABBOTT-05P-075-0305476-00

PATIENT
  Age: 74 Year
  Sex: Male

DRUGS (7)
  1. CLARITHROMYCIN [Suspect]
     Indication: PNEUMONIA
     Route: 048
     Dates: start: 20030216, end: 20030219
  2. COLCHICINE [Interacting]
     Indication: GOUT
     Route: 048
     Dates: start: 20030216, end: 20030219
  3. VANCOMYCIN [Concomitant]
     Indication: STAPHYLOCOCCAL SEPSIS
     Route: 042
     Dates: start: 20030223, end: 20030329
  4. LACTULOSE [Concomitant]
     Indication: CONSTIPATION
     Dates: start: 20030216
  5. FUROSEMIDE [Concomitant]
     Indication: CARDIAC FAILURE
     Route: 042
     Dates: start: 20030217, end: 20030222
  6. FUROSEMIDE [Concomitant]
     Indication: RENAL FAILURE
  7. ACTRAPID [Concomitant]
     Indication: DIABETES MELLITUS
     Dosage: SLIDING SCALE
     Route: 058

REACTIONS (7)
  - DRUG INTERACTION [None]
  - DRUG TOXICITY [None]
  - GOUT [None]
  - NAUSEA [None]
  - PANCYTOPENIA [None]
  - RENAL FAILURE ACUTE [None]
  - VOMITING [None]
